FAERS Safety Report 12655016 (Version 2)
Quarter: 2016Q4

REPORT INFORMATION
  Report Type: Report from Study
  Country: US (occurrence: US)
  Receive Date: 20160816
  Receipt Date: 20161003
  Transmission Date: 20170207
  Serious: Yes (Other)
  Sender: FDA-Public Use
  Company Number: US-AMGEN-USASL2016104548

PATIENT
  Age: 72 Year
  Sex: Female
  Weight: 90.72 kg

DRUGS (9)
  1. ENBREL [Suspect]
     Active Substance: ETANERCEPT
     Indication: RHEUMATOID ARTHRITIS
     Dosage: 50 MG, ONCE WEEKLY
     Route: 065
     Dates: start: 201505, end: 20160812
  2. BABY ASPIRIN [Concomitant]
     Active Substance: ASPIRIN
     Indication: MIGRAINE
     Dosage: 81 MG TABLET BY MOUTH DAILY
     Route: 048
     Dates: start: 201508
  3. ETODOLAC. [Concomitant]
     Active Substance: ETODOLAC
     Dosage: 400 MG TABLET BY MOUTH DAILY
     Route: 048
     Dates: start: 2015, end: 20160720
  4. PANTOPRAZOLE [Concomitant]
     Active Substance: PANTOPRAZOLE SODIUM
     Indication: GASTROOESOPHAGEAL REFLUX DISEASE
     Dosage: 40 MG TABLET BY MOUTH DAILY
     Route: 048
  5. ACYCLOVIR. [Concomitant]
     Active Substance: ACYCLOVIR
     Indication: GENITAL HERPES
     Dosage: 400 MG TABLET 2-3 TABLETS BY MOUTH DAILY
     Route: 048
     Dates: start: 1995
  6. HYDROCODONE/ACETAMINOPHEN [Concomitant]
     Active Substance: ACETAMINOPHEN\HYDROCODONE
     Indication: PAIN
     Dosage: 7.5/325 MG, 1/2 TABLET BY MOUTH AS NEEDED
     Route: 048
     Dates: start: 2003
  7. ENBREL [Suspect]
     Active Substance: ETANERCEPT
     Indication: FIBROMYALGIA
  8. ZYRTEC [Concomitant]
     Active Substance: CETIRIZINE HYDROCHLORIDE
     Indication: HYPERSENSITIVITY
     Dosage: 40 MG TABLET BY MOUTH ONCE DAILY
     Route: 048
     Dates: start: 1997
  9. TOPROL XL [Concomitant]
     Active Substance: METOPROLOL SUCCINATE
     Dosage: 25 MG TABLET BY MOUTH ONCE DAILY
     Route: 048
     Dates: start: 2003

REACTIONS (7)
  - Feeling abnormal [Unknown]
  - Bone disorder [Unknown]
  - Drug effect decreased [Unknown]
  - Candida infection [Recovering/Resolving]
  - Arthralgia [Unknown]
  - Rheumatoid arthritis [Unknown]
  - Pain [Unknown]

NARRATIVE: CASE EVENT DATE: 201505
